FAERS Safety Report 4986912-9 (Version None)
Quarter: 2006Q2

REPORT INFORMATION
  Report Type: 
  Country: None (occurrence: None)
  Receive Date: 20060501
  Receipt Date: 20060420
  Transmission Date: 20061013
  Serious: Yes (Other)
  Sender: FDA-Public Use
  Company Number: PHFR2006GB01506

PATIENT

DRUGS (1)
  1. ZOMETA [Suspect]

REACTIONS (2)
  - OSTEONECROSIS [None]
  - PAIN IN JAW [None]
